FAERS Safety Report 19300969 (Version 2)
Quarter: 2021Q3

REPORT INFORMATION
  Report Type: Spontaneous
  Country: JP (occurrence: JP)
  Receive Date: 20210525
  Receipt Date: 20210713
  Transmission Date: 20211014
  Serious: Yes (Other)
  Sender: FDA-Public Use
  Company Number: JP-AMGEN-JPNSP2021078764

PATIENT
  Age: 8 Decade

DRUGS (1)
  1. VECTIBIX [Suspect]
     Active Substance: PANITUMUMAB
     Indication: ANAL CANCER
     Dosage: UNK
     Route: 065

REACTIONS (4)
  - Anal cancer [Unknown]
  - Off label use [Unknown]
  - Dermatitis acneiform [Unknown]
  - Disease progression [Unknown]
